FAERS Safety Report 4822675-5 (Version None)
Quarter: 2005Q4

REPORT INFORMATION
  Report Type: 
  Country: None (occurrence: None)
  Receive Date: 20051108
  Receipt Date: 20050628
  Transmission Date: 20060501
  Serious: Yes (Life-Threatening)
  Sender: FDA-Public Use
  Company Number: FR-GLAXOSMITHKLINE-B0386319A

PATIENT
  Age: 48 Year
  Sex: Male
  Weight: 80 kg

DRUGS (10)
  1. AVANDAMET [Suspect]
     Indication: DIABETES MELLITUS NON-INSULIN-DEPENDENT
     Dosage: 1TAB TWICE PER DAY
     Route: 048
     Dates: start: 20050606, end: 20050628
  2. PREVISCAN [Suspect]
     Dosage: 1TAB PER DAY
     Route: 048
  3. GLUCOPHAGE [Suspect]
     Indication: DIABETES MELLITUS NON-INSULIN-DEPENDENT
     Dosage: 1000MG THREE TIMES PER DAY
     Route: 048
     Dates: end: 20050606
  4. LIPANTHYL [Concomitant]
  5. PROZAC [Concomitant]
  6. SUBUTEX [Concomitant]
     Dosage: 8MG PER DAY
     Route: 048
  7. PRAXILENE [Concomitant]
  8. FORTZAAR [Concomitant]
     Indication: HYPERTENSION
     Dosage: 1TAB PER DAY
     Route: 048
  9. EQUANIL [Concomitant]
     Dosage: 400MG THREE TIMES PER DAY
     Route: 048
  10. SERESTA [Concomitant]
     Route: 048

REACTIONS (2)
  - INTERNATIONAL NORMALISED RATIO INCREASED [None]
  - PROTHROMBIN TIME PROLONGED [None]
